FAERS Safety Report 7427886-0 (Version None)
Quarter: 2011Q2

REPORT INFORMATION
  Report Type: 
  Country: None (occurrence: None)
  Receive Date: 20110421
  Receipt Date: 20110406
  Transmission Date: 20111010
  Serious: Yes (Death)
  Sender: FDA-Public Use
  Company Number: US-CELGENEUS-163-21880-11040980

PATIENT
  Sex: Male
  Weight: 68 kg

DRUGS (2)
  1. REVLIMID [Suspect]
  2. REVLIMID [Suspect]
     Indication: LYMPHATIC DISORDER
     Dosage: 5 MILLIGRAM
     Route: 048
     Dates: start: 20110307

REACTIONS (1)
  - DEATH [None]
